FAERS Safety Report 8546644-7 (Version None)
Quarter: 2012Q3

REPORT INFORMATION
  Report Type: 
  Country: None (occurrence: None)
  Receive Date: 20120727
  Receipt Date: 20120720
  Transmission Date: 20120928
  Serious: Yes (Other)
  Sender: FDA-Public Use
  Company Number: US-RB-042719-12

PATIENT
  Age: 25 Year
  Sex: Male

DRUGS (7)
  1. SUBOXONE [Suspect]
     Dosage: DOSING DETAILS UNKNOWN
     Route: 065
     Dates: start: 20100101
  2. AMITRIPTYLINE HYDROCHLORIDE [Suspect]
     Indication: DEPRESSION
     Dosage: DOSE DETAILS NOT PROVIDED
     Route: 048
     Dates: start: 20120101
  3. SUBOXONE [Suspect]
     Indication: DRUG DEPENDENCE
     Route: 060
     Dates: start: 20100101
  4. HEROIN [Suspect]
     Indication: DRUG ABUSE
     Dosage: DOSE DETAILS NOT PROVIDED
     Route: 065
  5. SUBOXONE [Suspect]
     Indication: DRUG DEPENDENCE
     Route: 060
     Dates: start: 20100101
  6. SUBOXONE [Suspect]
     Dosage: DOSING DETAILS UNKNOWN
     Route: 065
     Dates: start: 20100101
  7. XANAX [Suspect]
     Indication: ANXIETY
     Dosage: DOSE DETAILS NOT PROVIDED
     Route: 048
     Dates: start: 20120101

REACTIONS (7)
  - DYSARTHRIA [None]
  - SUBSTANCE ABUSE [None]
  - INTENTIONAL OVERDOSE [None]
  - LOSS OF CONSCIOUSNESS [None]
  - DRUG ABUSE [None]
  - BALANCE DISORDER [None]
  - EUPHORIC MOOD [None]
